FAERS Safety Report 12740959 (Version 1)
Quarter: 2016Q3

REPORT INFORMATION
  Report Type: Report from Study
  Country: ES (occurrence: ES)
  Receive Date: 20160914
  Receipt Date: 20160914
  Transmission Date: 20161109
  Serious: Yes (Hospitalization)
  Sender: FDA-Public Use
  Company Number: ES-ROCHE-1727609

PATIENT
  Age: 73 Year
  Sex: Male
  Weight: 58.8 kg

DRUGS (22)
  1. TAMSULOSIN [Concomitant]
     Active Substance: TAMSULOSIN
     Indication: URINARY RETENTION
     Route: 065
     Dates: start: 2012
  2. ONDANSETRON [Concomitant]
     Active Substance: ONDANSETRON
     Indication: NAUSEA
     Route: 065
     Dates: start: 20151201
  3. DEXCHLORPHENIRAMINE [Concomitant]
     Active Substance: DEXCHLORPHENIRAMINE
     Indication: PREMEDICATION
     Route: 065
     Dates: start: 20160219, end: 20160219
  4. PRIMPERAN [Concomitant]
     Active Substance: METOCLOPRAMIDE HYDROCHLORIDE
     Indication: NAUSEA
     Route: 065
     Dates: start: 20151130
  5. ENANTYUM [Concomitant]
     Active Substance: DEXKETOPROFEN TROMETAMOL
     Indication: OSTEOARTHRITIS
     Route: 065
     Dates: start: 2013
  6. PARACETAMOL [Concomitant]
     Active Substance: ACETAMINOPHEN
     Indication: OSTEOARTHRITIS
     Route: 065
     Dates: start: 2013
  7. OMEPRAZOL [Concomitant]
     Active Substance: OMEPRAZOLE
     Indication: PROPHYLAXIS
  8. CLINDAMYCIN [Concomitant]
     Active Substance: CLINDAMYCIN\CLINDAMYCIN PHOSPHATE
     Indication: TOOTHACHE
     Route: 065
     Dates: start: 20151208
  9. DESLORATADINE. [Concomitant]
     Active Substance: DESLORATADINE
     Indication: RASH MACULO-PAPULAR
     Route: 065
     Dates: start: 20151208
  10. EBASTINA [Concomitant]
     Active Substance: EBASTINE
     Indication: RASH MACULO-PAPULAR
     Route: 065
     Dates: start: 20151209
  11. BEVACIZUMAB [Suspect]
     Active Substance: BEVACIZUMAB
     Indication: NON-SMALL CELL LUNG CANCER
     Dosage: MOST RECENT DOSE (894 MG) ADMINISTERED ON 11/MAR/2016, PRIOR TO BOTH EVENTS.
     Route: 042
     Dates: start: 20151127
  12. PACLITAXEL. [Suspect]
     Active Substance: PACLITAXEL
     Indication: NON-SMALL CELL LUNG CANCER
     Dosage: MOST RECENT DOSE (330 MG) ADMINISTERED ON 11/MAR/2016, PRIOR TO BOTH EVENTS.
     Route: 042
     Dates: start: 20151127
  13. DEXCHLORPHENIRAMINE [Concomitant]
     Active Substance: DEXCHLORPHENIRAMINE
     Indication: RASH MACULO-PAPULAR
     Route: 065
     Dates: start: 20151209
  14. DEXCHLORPHENIRAMINE [Concomitant]
     Active Substance: DEXCHLORPHENIRAMINE
     Route: 065
     Dates: start: 20160311, end: 20160311
  15. ALMAX (SPAIN) [Concomitant]
     Indication: DYSPEPSIA
     Route: 065
     Dates: start: 20160317
  16. ATEZOLIZUMAB [Suspect]
     Active Substance: ATEZOLIZUMAB
     Indication: NON-SMALL CELL LUNG CANCER
     Dosage: MOST RECENT DOSE ADMINISTERED ON 11/MAR/2016, PRIOR TO BOTH EVENTS.
     Route: 042
     Dates: start: 20151127
  17. ONDANSETRON [Concomitant]
     Active Substance: ONDANSETRON
     Indication: PREMEDICATION
     Route: 065
     Dates: start: 20160219, end: 20160219
  18. ONDANSETRON [Concomitant]
     Active Substance: ONDANSETRON
     Route: 065
     Dates: start: 20160311, end: 20160311
  19. RANITIDIN [Concomitant]
     Active Substance: RANITIDINE HYDROCHLORIDE
     Route: 065
     Dates: start: 20160311, end: 20160311
  20. CARBOPLATIN. [Suspect]
     Active Substance: CARBOPLATIN
     Indication: NON-SMALL CELL LUNG CANCER
     Dosage: TARGET AUC = 6 MG/ML/MIN?MOST RECENT DOSE (566 MG) ADMINISTERED ON 11/MAR/2016, PRIOR TO BOTH EVENTS
     Route: 042
     Dates: start: 20151127
  21. LORAZEPAM. [Concomitant]
     Active Substance: LORAZEPAM
     Indication: INSOMNIA
     Route: 065
     Dates: start: 20160324
  22. RANITIDIN [Concomitant]
     Active Substance: RANITIDINE HYDROCHLORIDE
     Indication: PREMEDICATION
     Route: 065
     Dates: start: 20160219, end: 20160219

REACTIONS (2)
  - Pneumonitis chemical [Recovered/Resolved with Sequelae]
  - Hypoxia [Recovered/Resolved]

NARRATIVE: CASE EVENT DATE: 20160314
